FAERS Safety Report 25904929 (Version 1)
Quarter: 2025Q4

REPORT INFORMATION
  Report Type: Spontaneous
  Country: JP (occurrence: None)
  Receive Date: 20251010
  Receipt Date: 20251010
  Transmission Date: 20260118
  Serious: Yes (Hospitalization, Other)
  Sender: NATCO PHARMA
  Company Number: JP-NATCOUSA-2025-NATCOUSA-000350

PATIENT
  Age: 74 Year
  Sex: Male

DRUGS (8)
  1. TRIFLURIDINE AND TIPIRACIL [Suspect]
     Active Substance: TIPIRACIL HYDROCHLORIDE\TRIFLURIDINE
     Indication: Colon cancer
  2. FUROSEMIDE [Concomitant]
     Active Substance: FUROSEMIDE
     Dosage: 20 MG/DAY
  3. EDOXABAN [Concomitant]
     Active Substance: EDOXABAN
     Dosage: 30 MG/DAY
  4. VONOPRAZAN [Concomitant]
     Active Substance: VONOPRAZAN
     Dosage: 20 MG/DAY
  5. SITAGLIPTIN [Concomitant]
     Active Substance: SITAGLIPTIN
     Dosage: 50 MG/DAY
  6. LEVOTHYROXINE [Concomitant]
     Active Substance: LEVOTHYROXINE
     Dosage: 50 UG/DAY
  7. PEMAFIBRATE [Concomitant]
     Active Substance: PEMAFIBRATE
     Dosage: 0.2 MG/DAY
  8. BROTIZOLAM [Concomitant]
     Active Substance: BROTIZOLAM
     Dosage: 0.25 MG/DAY

REACTIONS (1)
  - Nephrotic syndrome [Recovering/Resolving]
